FAERS Safety Report 21078230 (Version 1)
Quarter: 2022Q3

REPORT INFORMATION
  Report Type: Report from Study
  Country: US (occurrence: US)
  Receive Date: 20220713
  Receipt Date: 20220713
  Transmission Date: 20221026
  Serious: No
  Sender: FDA-Public Use
  Company Number: US-VANDA PHARMACEUTICALS, INC-2021TASUS005495

PATIENT
  Sex: Male
  Weight: 72.562 kg

DRUGS (4)
  1. HETLIOZ [Suspect]
     Active Substance: TASIMELTEON
     Indication: Non-24-hour sleep-wake disorder
     Dosage: 20 MILLIGRAM, QHS, ONE HOUR BEFORE BEDTIME
     Route: 048
  2. SEROQUEL [Concomitant]
     Active Substance: QUETIAPINE FUMARATE
     Indication: Product used for unknown indication
  3. GABAPENTIN [Concomitant]
     Active Substance: GABAPENTIN
     Indication: Product used for unknown indication
  4. REXULTI [Concomitant]
     Active Substance: BREXPIPRAZOLE
     Indication: Product used for unknown indication

REACTIONS (6)
  - Decreased appetite [Recovering/Resolving]
  - Middle insomnia [Unknown]
  - Weight decreased [Unknown]
  - Abnormal dreams [Unknown]
  - Tobacco interaction [Unknown]
  - Product use issue [Unknown]
